FAERS Safety Report 24071123 (Version 1)
Quarter: 2024Q3

REPORT INFORMATION
  Report Type: Report from Study
  Country: IN (occurrence: IN)
  Receive Date: 20240710
  Receipt Date: 20240710
  Transmission Date: 20241016
  Serious: No
  Sender: ROCHE
  Company Number: IN-ROCHE-3317059

PATIENT
  Age: 52 Year
  Sex: Female

DRUGS (1)
  1. PHESGO [Suspect]
     Active Substance: HYALURONIDASE-ZZXF\PERTUZUMAB\TRASTUZUMAB
     Indication: Breast cancer
     Dosage: PHESGO INFUSION WAS SCHEDULED BY THE PHYSICIAN FOR THE 29TH DAY INSTEAD OF THE 21 DAY DURATION
     Route: 058
     Dates: start: 20221201

REACTIONS (2)
  - Urinary tract infection [Unknown]
  - Off label use [Unknown]
